FAERS Safety Report 10415467 (Version 1)
Quarter: 2014Q2

REPORT INFORMATION
  Report Type: Spontaneous
  Country: US (occurrence: None)
  Receive Date: 20140604
  Receipt Date: 20140604
  Transmission Date: 20141212
  Serious: No
  Sender: FDA-Public Use
  Company Number: 163-POMAL-14022897

PATIENT
  Age: 64 Year
  Sex: Male
  Weight: 67 kg

DRUGS (5)
  1. POMALYST (POMALIDOMIDE) (4 MILLIGRAM, CAPSULES) [Suspect]
     Indication: PLASMA CELL MYELOMA
     Route: 048
     Dates: start: 201308
  2. DEXAMETHASONE [Concomitant]
  3. VICODIN [Concomitant]
  4. ASPIRIN (ACETYLSALICYLIC ACID) [Concomitant]
  5. TUMS (CALCIUM CARBONATE) [Concomitant]

REACTIONS (3)
  - Pollakiuria [None]
  - Fatigue [None]
  - Bone pain [None]
